FAERS Safety Report 16562556 (Version 1)
Quarter: 2019Q3

REPORT INFORMATION
  Report Type: Spontaneous
  Country: DE (occurrence: DE)
  Receive Date: 20190711
  Receipt Date: 20190711
  Transmission Date: 20191004
  Serious: Yes (Life-Threatening, Hospitalization)
  Sender: FDA-Public Use
  Company Number: DE-TEVA-2019-DE-1074455

PATIENT
  Age: 49 Year
  Sex: Male
  Weight: 100 kg

DRUGS (2)
  1. CLEXANE 30MG 0,3ML [Suspect]
     Active Substance: ENOXAPARIN SODIUM
     Dosage: 30 MG, 0-0-1-0, SOLUTION FOR INJECTION/INFUSION
     Route: 058
  2. NAPROXEN. [Suspect]
     Active Substance: NAPROXEN
     Dosage: NEED, TABLETS
     Route: 048

REACTIONS (9)
  - General physical health deterioration [Unknown]
  - Depressed level of consciousness [Unknown]
  - Haematochezia [Unknown]
  - Shock haemorrhagic [Unknown]
  - Hypotension [Unknown]
  - Pallor [Unknown]
  - Vomiting [Unknown]
  - Tachycardia [Unknown]
  - Diarrhoea [Unknown]
